FAERS Safety Report 5603415-9 (Version None)
Quarter: 2008Q1

REPORT INFORMATION
  Report Type: 
  Country: None (occurrence: None)
  Receive Date: 20080122
  Receipt Date: 20071207
  Transmission Date: 20080703
  Serious: Yes (Other)
  Sender: FDA-Public Use
  Company Number: 2007120746

PATIENT
  Age: 20 Day
  Sex: Male
  Weight: 1.1 kg

DRUGS (2)
  1. INTRALIPID 20% [Suspect]
     Indication: PARENTERAL NUTRITION
     Dosage: 1 IN 1 HR, INTRAVENOUS DRIP
     Route: 041
  2. PARENTERAL NUTRITION (TPN) [Concomitant]

REACTIONS (13)
  - ABDOMINAL DISTENSION [None]
  - BILIRUBIN CONJUGATED ABNORMAL [None]
  - BLOOD BILIRUBIN ABNORMAL [None]
  - FAILURE TO THRIVE [None]
  - HEPATIC ENZYME INCREASED [None]
  - INCORRECT DOSE ADMINISTERED [None]
  - INCORRECT DRUG DOSAGE FORM ADMINISTERED [None]
  - INTRAVENTRICULAR HAEMORRHAGE [None]
  - NEONATAL DISORDER [None]
  - NEONATAL HYPONATRAEMIA [None]
  - OVERDOSE [None]
  - REACTIVE ATTACHMENT DISORDER OF INFANCY OR EARLY CHILDHOOD [None]
  - UNEVALUABLE EVENT [None]
